FAERS Safety Report 7644886-6 (Version None)
Quarter: 2011Q3

REPORT INFORMATION
  Report Type: 
  Country: None (occurrence: None)
  Receive Date: 20110725
  Receipt Date: 20110712
  Transmission Date: 20111222
  Serious: Yes (Hospitalization)
  Sender: FDA-Public Use
  Company Number: 2011VY000033

PATIENT
  Sex: Female
  Weight: 117.9352 kg

DRUGS (2)
  1. KEFLEX [Suspect]
     Indication: BRONCHITIS
     Dates: start: 19760101, end: 19860101
  2. ALLERGY SHOTS [Concomitant]

REACTIONS (5)
  - ASTHMA [None]
  - URTICARIA [None]
  - DYSPNOEA [None]
  - RED BLOOD CELL COUNT DECREASED [None]
  - HYPERSENSITIVITY [None]
